FAERS Safety Report 4325615-0 (Version None)
Quarter: 2004Q1

REPORT INFORMATION
  Report Type: 
  Country: None (occurrence: None)
  Receive Date: 20040324
  Receipt Date: 20040316
  Transmission Date: 20041129
  Serious: Yes (Death)
  Sender: FDA-Public Use
  Company Number: 163-20785-04020142

PATIENT
  Age: 61 Year
  Sex: Female

DRUGS (1)
  1. THALOMID [Suspect]
     Indication: MULTIPLE MYELOMA
     Dosage: 100 MG, QD, ORAL
     Route: 048
     Dates: start: 20031022, end: 20040112

REACTIONS (4)
  - BONE MARROW TRANSPLANT [None]
  - MYELOMA RECURRENCE [None]
  - PANCYTOPENIA [None]
  - THERAPY NON-RESPONDER [None]
